FAERS Safety Report 4975117-3 (Version None)
Quarter: 2006Q2

REPORT INFORMATION
  Report Type: 
  Country: None (occurrence: None)
  Receive Date: 20060414
  Receipt Date: 20060414
  Transmission Date: 20061013
  Serious: Yes (Hospitalization)
  Sender: FDA-Public Use
  Company Number: None

PATIENT
  Age: 72 Year
  Sex: Female

DRUGS (9)
  1. AVAPRO [Suspect]
     Indication: HYPERTENSION
     Dosage: 1 TABLET DAILY PO
     Route: 048
     Dates: start: 20010101, end: 20060223
  2. AVAPRO [Suspect]
     Indication: PROPHYLAXIS
     Dosage: 1 TABLET DAILY PO
     Route: 048
     Dates: start: 20010101, end: 20060223
  3. AVAPRO [Suspect]
     Indication: PROTEINURIA
     Dosage: 1 TABLET DAILY PO
     Route: 048
     Dates: start: 20010101, end: 20060223
  4. AVAPRO [Suspect]
     Indication: RENAL DISORDER
     Dosage: 1 TABLET DAILY PO
     Route: 048
     Dates: start: 20010101, end: 20060223
  5. TOPROL-XL [Concomitant]
  6. ADVAIR DISKUS 100/50 [Concomitant]
  7. AXID [Concomitant]
  8. AMIODARONE HCL [Concomitant]
  9. COUMADIN [Concomitant]

REACTIONS (5)
  - DYSPHAGIA [None]
  - LOCAL SWELLING [None]
  - MASTICATION DISORDER [None]
  - SWELLING FACE [None]
  - SWOLLEN TONGUE [None]
